FAERS Safety Report 18038025 (Version 1)
Quarter: 2020Q3

REPORT INFORMATION
  Report Type: Spontaneous
  Country: US (occurrence: US)
  Receive Date: 20200717
  Receipt Date: 20200717
  Transmission Date: 20201103
  Serious: No
  Sender: FDA-Public Use
  Company Number: US-SUNOVION-2020SUN002046

PATIENT

DRUGS (2)
  1. LATUDA [Suspect]
     Active Substance: LURASIDONE HYDROCHLORIDE
     Indication: OBSESSIVE-COMPULSIVE DISORDER
     Dosage: UP TO 60 MG
     Route: 048
  2. LATUDA [Suspect]
     Active Substance: LURASIDONE HYDROCHLORIDE
     Indication: INTRUSIVE THOUGHTS
     Dosage: UNK
     Route: 048

REACTIONS (5)
  - Restlessness [Unknown]
  - Off label use [Unknown]
  - Fatigue [Unknown]
  - Weight increased [Unknown]
  - Drug ineffective for unapproved indication [Unknown]
